FAERS Safety Report 16669937 (Version 3)
Quarter: 2020Q2

REPORT INFORMATION
  Report Type: Spontaneous
  Country: AT (occurrence: AT)
  Receive Date: 20190805
  Receipt Date: 20200529
  Transmission Date: 20200713
  Serious: Yes (Hospitalization)
  Sender: FDA-Public Use
  Company Number: AT-TAKEDA-2019TUS042757

PATIENT
  Age: 52 Year
  Sex: Male

DRUGS (8)
  1. GEWACALM [Suspect]
     Active Substance: DIAZEPAM
     Indication: RESTLESSNESS
     Dosage: 10 MILLIGRAM
     Route: 048
  2. ZYPREXA [Concomitant]
     Active Substance: OLANZAPINE
     Indication: PSYCHOTIC DISORDER
     Dosage: UNK
  3. NOVALGIN                           /00169801/ [Concomitant]
     Active Substance: ACETAMINOPHEN\CAFFEINE\PROPYPHENAZONE
     Dosage: UNK
     Route: 050
  4. MESAGRAN [Concomitant]
     Active Substance: MESALAMINE
     Indication: COLITIS ULCERATIVE
     Dosage: 9 MILLIGRAM, QD
  5. PRAXITEN [Concomitant]
     Active Substance: OXAZEPAM
     Dosage: UNK
  6. ENTYVIO [Suspect]
     Active Substance: VEDOLIZUMAB
     Indication: COLITIS ULCERATIVE
     Dosage: UNK
     Route: 065
     Dates: start: 20190701
  7. GEWACALM [Suspect]
     Active Substance: DIAZEPAM
     Indication: ANXIETY
  8. CORTISONE [Concomitant]
     Active Substance: CORTISONE
     Dosage: UNK
     Dates: start: 20190715

REACTIONS (15)
  - Hyperhidrosis [Unknown]
  - Circumstance or information capable of leading to medication error [Not Recovered/Not Resolved]
  - Vomiting [Unknown]
  - Splenic injury [Unknown]
  - Pyrexia [Not Recovered/Not Resolved]
  - Dizziness [Unknown]
  - Colitis ulcerative [Unknown]
  - Anxiety [Unknown]
  - Feeling abnormal [Unknown]
  - Decreased appetite [Not Recovered/Not Resolved]
  - Chills [Unknown]
  - Alopecia [Unknown]
  - Night sweats [Not Recovered/Not Resolved]
  - Restlessness [Unknown]
  - Pain in extremity [Unknown]

NARRATIVE: CASE EVENT DATE: 20190702
